FAERS Safety Report 8841996 (Version 1)
Quarter: 2012Q4

REPORT INFORMATION
  Report Type: Spontaneous
  Country: US (occurrence: None)
  Receive Date: 20121015
  Receipt Date: 20121015
  Transmission Date: 20130627
  Serious: No
  Sender: FDA-Public Use
  Company Number: None

PATIENT
  Age: 64 Year
  Sex: Female
  Weight: 68.04 kg

DRUGS (1)
  1. LAMISIL [Suspect]
     Indication: FUNGAL INFECTION OF NAIL
     Dosage: Aug 30- Sep 5 
2 pill/day per day oral
     Route: 048

REACTIONS (2)
  - Haematuria [None]
  - Abdominal pain upper [None]
